FAERS Safety Report 14653162 (Version 1)
Quarter: 2018Q1

REPORT INFORMATION
  Report Type: Spontaneous
  Country: US (occurrence: US)
  Receive Date: 20180319
  Receipt Date: 20180319
  Transmission Date: 20180509
  Serious: No
  Sender: FDA-Public Use
  Company Number: US-LEO PHARMA-307727

PATIENT
  Sex: Female

DRUGS (2)
  1. PICATO [Suspect]
     Active Substance: INGENOL MEBUTATE
     Indication: PRECANCEROUS SKIN LESION
     Route: 061
     Dates: start: 20180302
  2. PICATO [Suspect]
     Active Substance: INGENOL MEBUTATE
     Dosage: APPLIED LAST YEAR AND WAS ADVISED BY DOCTOR TO DISCONTINUE PRODUCT AFTER THE SECOND DOSE.

REACTIONS (3)
  - Application site erythema [Not Recovered/Not Resolved]
  - Application site warmth [Not Recovered/Not Resolved]
  - Inappropriate schedule of drug administration [Unknown]

NARRATIVE: CASE EVENT DATE: 20180302
